FAERS Safety Report 5385648-2 (Version None)
Quarter: 2007Q3

REPORT INFORMATION
  Report Type: 
  Country: None (occurrence: None)
  Receive Date: 20070712
  Receipt Date: 20070705
  Transmission Date: 20080115
  Serious: Yes (Other)
  Sender: FDA-Public Use
  Company Number: FR-ASTRAZENECA-2007SE03940

PATIENT
  Age: 85 Year
  Sex: Female

DRUGS (5)
  1. KENZEN [Suspect]
     Indication: HYPERTENSION
     Route: 048
     Dates: start: 20060101, end: 20070401
  2. ZANIDIP [Concomitant]
     Route: 065
     Dates: end: 20070601
  3. ATARAX [Concomitant]
     Route: 065
  4. KARDEGIC [Concomitant]
     Route: 065
  5. FORLAX [Concomitant]
     Route: 065

REACTIONS (1)
  - ACQUIRED EPIDERMOLYSIS BULLOSA [None]
